FAERS Safety Report 5217246-5 (Version None)
Quarter: 2007Q1

REPORT INFORMATION
  Report Type: 
  Country: None (occurrence: None)
  Receive Date: 20070122
  Receipt Date: 20070122
  Transmission Date: 20070707
  Serious: Yes (Other)
  Sender: FDA-Public Use
  Company Number: None

PATIENT
  Sex: Female
  Weight: 65.7716 kg

DRUGS (3)
  1. NIFEDIPINE [Suspect]
     Indication: HYPERTENSION
     Dosage: 60 MG DAILY ORAL
     Route: 048
     Dates: start: 20061003, end: 20061123
  2. SYNTHROID [Concomitant]
  3. ZOCOR [Concomitant]

REACTIONS (4)
  - DIZZINESS [None]
  - FAECAL INCONTINENCE [None]
  - HYPERHIDROSIS [None]
  - LOSS OF CONSCIOUSNESS [None]
